FAERS Safety Report 9247138 (Version 1)
Quarter: 2013Q2

REPORT INFORMATION
  Report Type: Spontaneous
  Country: DE (occurrence: DE)
  Receive Date: 20130423
  Receipt Date: 20130423
  Transmission Date: 20140414
  Serious: Yes (Other)
  Sender: FDA-Public Use
  Company Number: DE-AMGEN-DEUSP2013027857

PATIENT
  Age: 72 Year
  Sex: Male
  Weight: 88 kg

DRUGS (2)
  1. VECTIBIX [Suspect]
     Indication: COLON CANCER
     Dosage: 500 MG, UNK (100 MG)
     Route: 042
     Dates: start: 20130318
  2. CHEMOTHERAPEUTICS [Concomitant]
     Indication: COLON CANCER
     Dosage: UNK

REACTIONS (1)
  - Pulmonary oedema [Recovered/Resolved]
